FAERS Safety Report 19205144 (Version 1)
Quarter: 2021Q2

REPORT INFORMATION
  Report Type: Spontaneous
  Country: US (occurrence: US)
  Receive Date: 20210501
  Receipt Date: 20210501
  Transmission Date: 20210717
  Serious: No
  Sender: FDA-Public Use
  Company Number: None

PATIENT
  Age: 59 Year
  Sex: Female
  Weight: 96.75 kg

DRUGS (17)
  1. JARDIANCE [Concomitant]
     Active Substance: EMPAGLIFLOZIN
  2. TYLENOL [Concomitant]
     Active Substance: ACETAMINOPHEN
  3. REPATHA [Suspect]
     Active Substance: EVOLOCUMAB
     Indication: BLOOD CHOLESTEROL INCREASED
     Dosage: ?          QUANTITY:1 INJECTION(S);OTHER FREQUENCY:1 X MONTH;?
     Route: 058
     Dates: start: 20210425, end: 20210425
  4. BYDUREON BCISE [Concomitant]
     Active Substance: EXENATIDE
  5. CBD OIL [Concomitant]
     Active Substance: CANNABIDIOL\HERBALS
  6. HCTZ [Concomitant]
     Active Substance: HYDROCHLOROTHIAZIDE
  7. SAVELLA [Concomitant]
     Active Substance: MILNACIPRAN HYDROCHLORIDE
  8. ACTOS [Concomitant]
     Active Substance: PIOGLITAZONE HYDROCHLORIDE
  9. CARVEDILOL. [Concomitant]
     Active Substance: CARVEDILOL
  10. TRAZODONE [Concomitant]
     Active Substance: TRAZODONE HYDROCHLORIDE
  11. PROBIOTICS [Concomitant]
     Active Substance: PROBIOTICS NOS
  12. METFORMIN [Concomitant]
     Active Substance: METFORMIN HYDROCHLORIDE
  13. TRAMADOL. [Concomitant]
     Active Substance: TRAMADOL
  14. VITAMIN D [Concomitant]
     Active Substance: VITAMIN D NOS
  15. ESTROVEN [Concomitant]
     Active Substance: DIETARY SUPPLEMENT
  16. LISINOPRIL. [Concomitant]
     Active Substance: LISINOPRIL
  17. GLIPIZIDE. [Concomitant]
     Active Substance: GLIPIZIDE

REACTIONS (5)
  - Hemiparesis [None]
  - Dizziness [None]
  - Pain [None]
  - Nausea [None]
  - Abdominal pain upper [None]

NARRATIVE: CASE EVENT DATE: 20210425
